FAERS Safety Report 10696198 (Version 2)
Quarter: 2015Q1

REPORT INFORMATION
  Report Type: Spontaneous
  Country: US (occurrence: US)
  Receive Date: 20150107
  Receipt Date: 20150123
  Transmission Date: 20150721
  Serious: No
  Sender: FDA-Public Use
  Company Number: US-009507513-1501USA001119

PATIENT
  Age: 80 Year
  Sex: Female
  Weight: 52.61 kg

DRUGS (2)
  1. OXYTROL FOR WOMEN [Suspect]
     Active Substance: OXYBUTYNIN
     Indication: URINE FLOW DECREASED
     Dosage: UNK, UNKNOWN
     Route: 062
     Dates: start: 201307, end: 20141214
  2. AMLODIPINE BESYLATE. [Concomitant]
     Active Substance: AMLODIPINE BESYLATE
     Indication: HYPERTENSION
     Dosage: 10 MG, UNKNOWN

REACTIONS (5)
  - Product use issue [Unknown]
  - Burning sensation [Recovered/Resolved]
  - Rash [Recovered/Resolved]
  - Application site erythema [Recovering/Resolving]
  - Application site burn [Recovered/Resolved]

NARRATIVE: CASE EVENT DATE: 201307
